FAERS Safety Report 9167660 (Version 1)
Quarter: 2013Q1

REPORT INFORMATION
  Report Type: Spontaneous
  Country: US (occurrence: None)
  Receive Date: 20130304
  Receipt Date: 20130304
  Transmission Date: 20140127
  Serious: No
  Sender: FDA-Public Use
  Company Number: NSR_01041_2013

PATIENT
  Sex: Female

DRUGS (1)
  1. ALLOPURINOL [Suspect]
     Indication: GOUT
     Dosage: DF

REACTIONS (9)
  - Hepatomegaly [None]
  - Fall [None]
  - Normochromic normocytic anaemia [None]
  - Iron deficiency [None]
  - Cholelithiasis [None]
  - Left ventricular hypertrophy [None]
  - Mitral valve incompetence [None]
  - Tricuspid valve incompetence [None]
  - Granulomatous liver disease [None]
